FAERS Safety Report 19268401 (Version 1)
Quarter: 2021Q2

REPORT INFORMATION
  Report Type: Spontaneous
  Country: FI (occurrence: FI)
  Receive Date: 20210517
  Receipt Date: 20210517
  Transmission Date: 20210717
  Serious: Yes (Death, Other)
  Sender: FDA-Public Use
  Company Number: FI-DSJP-DSE-2021-114415

PATIENT
  Age: 73 Year
  Sex: Male

DRUGS (1)
  1. LIXIANA [Suspect]
     Active Substance: EDOXABAN TOSYLATE
     Indication: ATRIAL FIBRILLATION
     Dosage: 60 MG, QD
     Route: 048
     Dates: start: 20200818

REACTIONS (2)
  - Brain death [Fatal]
  - Cerebral haemorrhage [Fatal]
